FAERS Safety Report 11080891 (Version 1)
Quarter: 2015Q2

REPORT INFORMATION
  Report Type: Report from Study
  Country: US (occurrence: US)
  Receive Date: 20150501
  Receipt Date: 20150501
  Transmission Date: 20150821
  Serious: Yes (Other)
  Sender: FDA-Public Use
  Company Number: US-SA-2014SA041437

PATIENT
  Age: 57 Year
  Sex: Female

DRUGS (1)
  1. AUBAGIO [Suspect]
     Active Substance: TERIFLUNOMIDE
     Indication: MULTIPLE SCLEROSIS
     Route: 048
     Dates: start: 20140328, end: 20140615

REACTIONS (10)
  - Scleroderma [Unknown]
  - Peripheral swelling [Unknown]
  - Eye swelling [Unknown]
  - Rash [Unknown]
  - Erythema [Unknown]
  - Dermatomyositis [Unknown]
  - Inflammation [Unknown]
  - Alopecia [Recovering/Resolving]
  - Hypoaesthesia [Not Recovered/Not Resolved]
  - Condition aggravated [Unknown]

NARRATIVE: CASE EVENT DATE: 2014
